FAERS Safety Report 19847549 (Version 1)
Quarter: 2021Q3

REPORT INFORMATION
  Report Type: Spontaneous
  Country: DE (occurrence: DE)
  Receive Date: 20210917
  Receipt Date: 20210917
  Transmission Date: 20211014
  Serious: Yes (Hospitalization)
  Sender: FDA-Public Use
  Company Number: DE-TEVA-2021-DE-1951970

PATIENT
  Age: 78 Year
  Sex: Male
  Weight: 80 kg

DRUGS (12)
  1. ATORVASTATIN [Concomitant]
     Active Substance: ATORVASTATIN
     Dosage: 40 MILLIGRAM DAILY; 0?0?1?0
     Route: 048
  2. MIRTAZAPIN [Concomitant]
     Active Substance: MIRTAZAPINE
     Dosage: .5 DOSAGE FORMS DAILY; 15 MG, 0?0?0.5?0
     Route: 048
  3. METOPROLOL. [Concomitant]
     Active Substance: METOPROLOL
     Dosage: 1 DOSAGE FORMS DAILY; 47.5 MG, 0.5?0?0.5?0
     Route: 048
  4. AMLODIPIN/HYDROCHLOROTHIAZID/VALSARTAN [Suspect]
     Active Substance: AMLODIPINE\HYDROCHLOROTHIAZIDE\VALSARTAN
     Dosage: 1 DOSAGE FORMS DAILY; 5|12.5|160 MG, 1?0?0?0
     Route: 048
  5. INSULIN GLARGIN [Concomitant]
     Active Substance: INSULIN GLARGINE
     Dosage: 20 DOSAGE FORMS DAILY; 1 IU, 0?0?20?0
     Route: 058
  6. DULAGLUTID [Concomitant]
     Active Substance: DULAGLUTIDE
     Dosage: 1.5 MG, ACCORDING TO THE SCHEME
     Route: 058
  7. SERTRALIN [Concomitant]
     Active Substance: SERTRALINE HYDROCHLORIDE
     Dosage: 50 MILLIGRAM DAILY;  1?0?0?0
     Route: 048
  8. SERTRALIN [Concomitant]
     Active Substance: SERTRALINE HYDROCHLORIDE
     Dosage: 100 MILLIGRAM DAILY;  1?0?0?0
     Route: 048
  9. PANTOPRAZOL [Concomitant]
     Active Substance: PANTOPRAZOLE SODIUM
     Dosage: 20 MILLIGRAM DAILY; 1?0?0?0
     Route: 048
  10. TORASEMID [Suspect]
     Active Substance: TORSEMIDE
     Dosage: 20 MILLIGRAM DAILY; 1?0?1?0
     Route: 048
  11. INSULIN HUMAN [Concomitant]
     Active Substance: INSULIN HUMAN
     Dosage: 1 IU, 30?25?28?0
     Route: 058
  12. ACETYLSALICYLSAURE [Suspect]
     Active Substance: ASPIRIN
     Dosage: 100 MILLIGRAM DAILY; 1?0?0?0
     Route: 048

REACTIONS (6)
  - Duodenal ulcer haemorrhage [Unknown]
  - Dyspnoea [Unknown]
  - Acute kidney injury [Unknown]
  - Diarrhoea [Unknown]
  - Haematochezia [Unknown]
  - Oedema peripheral [Unknown]
